FAERS Safety Report 19768622 (Version 1)
Quarter: 2021Q3

REPORT INFORMATION
  Report Type: Spontaneous
  Country: NL (occurrence: NL)
  Receive Date: 20210831
  Receipt Date: 20210831
  Transmission Date: 20211014
  Serious: Yes (Other)
  Sender: FDA-Public Use
  Company Number: NL-MICRO LABS LIMITED-ML2021-02172

PATIENT
  Age: 69 Year
  Sex: Female

DRUGS (10)
  1. DIPYRIDAMOLE. [Concomitant]
     Active Substance: DIPYRIDAMOLE
  2. LEVOTHYROXINE. [Concomitant]
     Active Substance: LEVOTHYROXINE
  3. ATORVASTATIN (ANDA 205945) [Suspect]
     Active Substance: ATORVASTATIN CALCIUM
  4. CALCIUM WITH VITAMIN D [Concomitant]
     Active Substance: CALCIUM\VITAMIN D
  5. RED YEAST RICE [Suspect]
     Active Substance: DIETARY SUPPLEMENT
  6. ACETYLSALICYLIC ACID [Concomitant]
     Active Substance: ASPIRIN
  7. CODEINE [Suspect]
     Active Substance: CODEINE
  8. PERINDOPRIL WITH DIURETICS [Concomitant]
  9. AMITRIPTYLINE HYDROCHLORIDE. [Concomitant]
     Active Substance: AMITRIPTYLINE HYDROCHLORIDE
  10. OMEPRAZOLE. [Concomitant]
     Active Substance: OMEPRAZOLE

REACTIONS (3)
  - Drug interaction [Unknown]
  - Cholecystitis [Recovering/Resolving]
  - Pancreatitis acute [Recovering/Resolving]
